FAERS Safety Report 25752605 (Version 2)
Quarter: 2025Q3

REPORT INFORMATION
  Report Type: Report from Study
  Country: US (occurrence: US)
  Receive Date: 20250902
  Receipt Date: 20250917
  Transmission Date: 20251021
  Serious: Yes (Other)
  Sender: CALLIDITAS THERAPEUTICS AB
  Company Number: US-Calliditas-2025CAL02666

PATIENT
  Age: 37 Year
  Sex: Male

DRUGS (4)
  1. TARPEYO [Suspect]
     Active Substance: BUDESONIDE
     Indication: IgA nephropathy
     Route: 048
     Dates: start: 20240429, end: 20250902
  2. CLONIDINE [Concomitant]
     Active Substance: CLONIDINE
  3. MINOXIDIL [Concomitant]
     Active Substance: MINOXIDIL
  4. PANTOPRAZOLE [Concomitant]
     Active Substance: PANTOPRAZOLE

REACTIONS (1)
  - Steroid withdrawal syndrome [Recovered/Resolved]

NARRATIVE: CASE EVENT DATE: 20250801
